FAERS Safety Report 8449095-9 (Version None)
Quarter: 2012Q2

REPORT INFORMATION
  Report Type: 
  Country: None (occurrence: None)
  Receive Date: 20120619
  Receipt Date: 20120613
  Transmission Date: 20120825
  Serious: Yes (Hospitalization)
  Sender: FDA-Public Use
  Company Number: US-ACTELION-A-NJ2011-51670

PATIENT

DRUGS (5)
  1. VENTAVIS [Suspect]
     Indication: PULMONARY ARTERIAL HYPERTENSION
     Dosage: UNK
     Route: 055
     Dates: start: 20110503
  2. TRACLEER [Suspect]
     Indication: PULMONARY ARTERIAL HYPERTENSION
     Dosage: UNK
     Route: 048
     Dates: start: 20100527, end: 20120301
  3. ADCIRCA [Concomitant]
  4. COUMADIN [Concomitant]
  5. REVATIO [Concomitant]

REACTIONS (4)
  - FLUID RETENTION [None]
  - ABDOMINAL DISTENSION [None]
  - RENAL FAILURE ACUTE [None]
  - DYSPNOEA [None]
